FAERS Safety Report 10962835 (Version 3)
Quarter: 2015Q2

REPORT INFORMATION
  Report Type: Spontaneous
  Country: US (occurrence: US)
  Receive Date: 20150327
  Receipt Date: 20150422
  Transmission Date: 20150821
  Serious: Yes (Disabling)
  Sender: FDA-Public Use
  Company Number: US-PERRIGO-15US002661

PATIENT
  Age: 56 Year
  Sex: Female
  Weight: 92.97 kg

DRUGS (4)
  1. HYDROCORTISONE 2.5% 1F3 [Suspect]
     Active Substance: HYDROCORTISONE
     Indication: ECZEMA
     Dosage: SMALL AMOUNT, BID
     Route: 061
     Dates: start: 20141209, end: 201501
  2. STEROID CREAMS [Suspect]
     Active Substance: UNSPECIFIED INGREDIENT
     Indication: ECZEMA
     Dosage: UNK
     Route: 061
  3. TRIAMCINOLONE ACETONIDE RX 0.5% 5H1 [Suspect]
     Active Substance: TRIAMCINOLONE ACETONIDE
     Indication: ECZEMA
     Dosage: SMALL AMOUNT, BID
     Route: 061
     Dates: start: 201501, end: 201502
  4. TRIAMCINOLONE ACETONIDE RX 0.5% 5H1 [Suspect]
     Active Substance: TRIAMCINOLONE ACETONIDE
     Dosage: SMALL AMOUNT, BID
     Route: 061
     Dates: end: 201502

REACTIONS (1)
  - Application site discolouration [Not Recovered/Not Resolved]

NARRATIVE: CASE EVENT DATE: 201502
